FAERS Safety Report 6106876-4 (Version None)
Quarter: 2009Q1

REPORT INFORMATION
  Report Type: 
  Country: None (occurrence: None)
  Receive Date: 20090302
  Receipt Date: 20090213
  Transmission Date: 20090719
  Serious: Yes (Life-Threatening)
  Sender: FDA-Public Use
  Company Number: JHP200900054

PATIENT
  Age: 27 Year
  Sex: Male
  Weight: 22 kg

DRUGS (8)
  1. DANTRIUM        (DANTROLENE SODIUM)         IV       (FOR INJECTION) [Suspect]
     Indication: NEUROLEPTIC MALIGNANT SYNDROME
     Dosage: 20 MG, TID, IV DRIP
     Route: 041
     Dates: start: 20080810, end: 20080812
  2. PARLODEL [Suspect]
     Indication: NEUROLEPTIC MALIGNANT SYNDROME
     Dosage: 2.5 MG, TID, ORAL; 2.5 MG, BID, ORAL
     Route: 048
     Dates: start: 20080810, end: 20080811
  3. PARLODEL [Suspect]
     Indication: NEUROLEPTIC MALIGNANT SYNDROME
     Dosage: 2.5 MG, TID, ORAL; 2.5 MG, BID, ORAL
     Route: 048
     Dates: start: 20080811, end: 20080812
  4. PRIMPERAN          /00041902/ (METOCLOPRAMIDE HYDROCHLORIDE) [Concomitant]
  5. GLUCOSE INJECTION    (GLUCOSE INJECTION) [Concomitant]
  6. POTACOL-R (CALCIUM CHLORIDE ANHYDROUS, MALTOSE, POTASSIUM CHLORIDE, SO [Concomitant]
  7. NSAID'S UNKNOWN [Concomitant]
  8. MEROPEN        /01250501/ (MEROPENEM) [Concomitant]

REACTIONS (2)
  - BLOOD PRESSURE DECREASED [None]
  - DEHYDRATION [None]
